FAERS Safety Report 4458585-5 (Version None)
Quarter: 2004Q3

REPORT INFORMATION
  Report Type: 
  Country: None (occurrence: None)
  Receive Date: 20040917
  Receipt Date: 20031013
  Transmission Date: 20050211
  Serious: Yes (Other)
  Sender: FDA-Public Use
  Company Number: US-JNJFOC-20030805638

PATIENT
  Age: 40 Year
  Sex: Female

DRUGS (4)
  1. TOPAMAX [Suspect]
     Indication: MIGRAINE
     Dosage: 25 MG, 1 IN 1 DAY, ORAL
     Route: 048
     Dates: start: 20030813, end: 20030820
  2. PROTONEX (PANTOPRAZOLE) [Concomitant]
  3. ZYRTEC [Concomitant]
  4. YASMINE (DROSPIRENONE) [Concomitant]

REACTIONS (2)
  - ANGLE CLOSURE GLAUCOMA [None]
  - VISUAL DISTURBANCE [None]
